FAERS Safety Report 4522031-3 (Version None)
Quarter: 2004Q4

REPORT INFORMATION
  Report Type: 
  Country: None (occurrence: None)
  Receive Date: 20041209
  Receipt Date: 20041126
  Transmission Date: 20050328
  Serious: Yes (Death, Other)
  Sender: FDA-Public Use
  Company Number: JP-JNJFOC-20041106512

PATIENT
  Sex: Female
  Weight: 55 kg

DRUGS (53)
  1. TRAMADOL HCL [Suspect]
     Route: 049
     Dates: start: 20040528, end: 20040530
  2. TRAMADOL HCL [Suspect]
     Route: 049
     Dates: start: 20040528, end: 20040530
  3. TRAMADOL HCL [Suspect]
     Indication: CANCER PAIN
     Route: 049
     Dates: start: 20040528, end: 20040530
  4. MORPHINE SULFATE [Suspect]
     Route: 049
  5. MORPHINE SULFATE [Suspect]
     Route: 049
  6. MORPHINE SULFATE [Suspect]
     Route: 049
  7. MORPHINE SULFATE [Suspect]
     Route: 049
  8. MORPHINE SULFATE [Suspect]
     Indication: CANCER PAIN
     Route: 049
  9. MAGNESIUM OXIDE [Concomitant]
     Route: 049
  10. MAGNESIUM OXIDE [Concomitant]
     Route: 049
  11. MAGNESIUM OXIDE [Concomitant]
     Route: 049
  12. SPIRONOLACTONE [Concomitant]
     Route: 049
  13. FUROSEMIDE [Concomitant]
     Dosage: INJECTION
  14. FUROSEMIDE [Concomitant]
     Dosage: INJECTION
  15. FUROSEMIDE [Concomitant]
     Dosage: ORAL
  16. BROTIZOLAM [Concomitant]
     Route: 049
  17. ISOTONIC SODIUM CHLORIDE SOLUTION [Concomitant]
     Route: 050
  18. ISOTONIC SODIUM CHLORIDE SOLUTION [Concomitant]
     Route: 050
  19. ISOTONIC SODIUM CHLORIDE SOLUTION [Concomitant]
     Route: 050
  20. ISOTONIC SODIUM CHLORIDE SOLUTION [Concomitant]
     Route: 050
  21. ISOTONIC SODIUM CHLORIDE SOLUTION [Concomitant]
     Route: 050
  22. ENSURE LIQUID [Concomitant]
     Route: 049
  23. ENSURE LIQUID [Concomitant]
     Route: 049
  24. ENSURE LIQUID [Concomitant]
     Route: 049
  25. SENNOSIDE [Concomitant]
     Route: 049
  26. SENNOSIDE [Concomitant]
     Route: 049
  27. SENNOSIDE [Concomitant]
     Route: 049
  28. GLUCOSE ACETATED RINGERS SOLUTION [Concomitant]
     Route: 050
  29. GLUCOSE ACETATED RINGERS SOLUTION [Concomitant]
     Route: 050
  30. GLUCOSE ACETATED RINGERS SOLUTION [Concomitant]
     Route: 050
  31. GLUCOSE ACETATED RINGERS SOLUTION [Concomitant]
     Route: 050
  32. GLUCOSE ACETATED RINGERS SOLUTION [Concomitant]
     Route: 050
  33. HEPARIN SODIUM [Concomitant]
     Route: 065
  34. LOXOPROFEN SODIUM [Concomitant]
     Route: 049
  35. INDOMETHACIN [Concomitant]
     Route: 065
  36. INDOMETHACIN [Concomitant]
     Route: 065
  37. FLURBIPROFEN AXETIL [Concomitant]
     Route: 050
  38. FLURBIPROFEN AXETIL [Concomitant]
     Route: 050
  39. FLURBIPROFEN AXETIL [Concomitant]
     Route: 050
  40. FLURBIPROFEN AXETIL [Concomitant]
     Route: 050
  41. VITAMEDIN [Concomitant]
     Route: 050
  42. VITAMEDIN [Concomitant]
     Route: 050
  43. VITAMEDIN [Concomitant]
     Route: 050
  44. ASCORBIC ACID [Concomitant]
     Route: 050
  45. PROCAINE HYDROCHLORIDE INJ [Concomitant]
     Route: 050
  46. AMINO ACID INJ [Concomitant]
     Route: 050
  47. VITAMIN [Concomitant]
     Route: 050
  48. ZINC SULFATE [Concomitant]
     Route: 050
  49. LACTATED RINGER'S [Concomitant]
     Route: 050
  50. LACTATED RINGER'S [Concomitant]
     Route: 050
  51. LACTATED RINGER'S [Concomitant]
     Route: 050
  52. PENTAZOCINE [Concomitant]
     Route: 050
  53. HALOPERIDOL [Concomitant]
     Route: 030

REACTIONS (19)
  - ABDOMINAL DISTENSION [None]
  - ABDOMINAL PAIN [None]
  - ANURIA [None]
  - APNOEA [None]
  - BILE DUCT STENOSIS [None]
  - BLOOD ALKALINE PHOSPHATASE INCREASED [None]
  - CARDIAC ARREST [None]
  - CHEST X-RAY ABNORMAL [None]
  - GENERAL PHYSICAL HEALTH DETERIORATION [None]
  - LUNG DISORDER [None]
  - MALIGNANT NEOPLASM PROGRESSION [None]
  - METASTASES TO LYMPH NODES [None]
  - NEOPLASM MALIGNANT [None]
  - OXYGEN SATURATION DECREASED [None]
  - PRODUCTIVE COUGH [None]
  - PYREXIA [None]
  - SOMNOLENCE [None]
  - TREATMENT NONCOMPLIANCE [None]
  - VOMITING [None]
